FAERS Safety Report 4367883-5 (Version None)
Quarter: 2004Q2

REPORT INFORMATION
  Report Type: 
  Country: None (occurrence: None)
  Receive Date: 20040601
  Receipt Date: 20040601
  Transmission Date: 20050107
  Serious: Yes (Hospitalization, Disabling)
  Sender: FDA-Public Use
  Company Number: None

PATIENT
  Age: 30 Year
  Sex: Male
  Weight: 65.318 kg

DRUGS (3)
  1. ZOLOFT [Suspect]
     Indication: HEART RATE INCREASED
     Dosage: 25 MG 1 A DAY ORAL
     Route: 048
     Dates: start: 20000427, end: 20000427
  2. LEVSIN PB [Concomitant]
  3. LEVBID [Concomitant]

REACTIONS (7)
  - CONVERSION DISORDER [None]
  - FEAR [None]
  - HYPERVENTILATION [None]
  - PALPITATIONS [None]
  - PSYCHIATRIC SYMPTOM [None]
  - RESPIRATION ABNORMAL [None]
  - TREMOR [None]
